FAERS Safety Report 5125065-3 (Version None)
Quarter: 2006Q4

REPORT INFORMATION
  Report Type: 
  Country: None (occurrence: None)
  Receive Date: 20061011
  Receipt Date: 20061004
  Transmission Date: 20070319
  Serious: Yes (Hospitalization)
  Sender: FDA-Public Use
  Company Number: NO-BRISTOL-MYERS SQUIBB COMPANY-13529730

PATIENT
  Age: 57 Year
  Sex: Male

DRUGS (2)
  1. DASATINIB [Suspect]
     Indication: CHRONIC MYELOID LEUKAEMIA
     Dosage: TWICE DAILY DOSING INTERRUPTED 03-OCT-2006
     Route: 048
     Dates: start: 20050901
  2. ENALAPRILAT [Concomitant]

REACTIONS (3)
  - CELLULITIS [None]
  - ERYSIPELAS [None]
  - PYREXIA [None]
